FAERS Safety Report 9596763 (Version 1)
Quarter: 2013Q4

REPORT INFORMATION
  Report Type: Report from Study
  Country: DE (occurrence: DE)
  Receive Date: 20131004
  Receipt Date: 20131004
  Transmission Date: 20140711
  Serious: Yes (Hospitalization)
  Sender: FDA-Public Use
  Company Number: DE-BRISTOL-MYERS SQUIBB COMPANY-19435098

PATIENT
  Age: 53 Year
  Sex: Female

DRUGS (11)
  1. TAXOL [Suspect]
     Indication: HER-2 POSITIVE BREAST CANCER
     Dosage: DATE OF LAST DOSE PRIOR TO DYSPNEA: 06/AUG/2013 (140 MG)
     Dates: start: 20130604
  2. TRASTUZUMAB [Suspect]
     Indication: HER-2 POSITIVE BREAST CANCER
     Dosage: LDING DS CY 1 OLY AS/PRTCOL(8 MG/KG)?DT LT DSDYSPNEA:06/AU/13(6 MG/KG,L/3WK):4JN13-4JN13?25JN13-
     Route: 042
     Dates: start: 20130604
  3. BLINDED: PERTUZUMAB [Suspect]
     Indication: HER-2 POSITIVE BREAST CANCER
     Dosage: LDING DOS CY 1 ONLY AS/PROTCOLINF?DT LT DOSE PRIOR DYSPNEA:6/AG/13 (1/3 WK)?4JN13-4JN13?25JN13-
     Route: 042
     Dates: start: 20130604
  4. BLINDED: PLACEBO [Suspect]
     Indication: HER-2 POSITIVE BREAST CANCER
     Dosage: RECT DOSE ON 06-AUG-2013
     Dates: start: 20130604
  5. FUROSEMIDE [Concomitant]
     Dates: start: 20130806, end: 20130815
  6. METOCLOPRAMIDE [Concomitant]
     Dosage: 1 DF=5 MG/ML
     Dates: start: 20130813
  7. ZOLPIDEM [Concomitant]
     Dates: start: 20130625
  8. OMEPRAZOLE [Concomitant]
     Dates: start: 20130408
  9. METOCLOPRAMIDE HCL [Concomitant]
  10. L-THYROXINE [Concomitant]
     Dosage: 1 DF=75 NO UNITS
     Dates: start: 1973
  11. IBUPROFEN [Concomitant]
     Dates: start: 1973

REACTIONS (1)
  - Dyspnoea [Recovered/Resolved]
